FAERS Safety Report 5022450-5 (Version None)
Quarter: 2006Q2

REPORT INFORMATION
  Report Type: 
  Country: None (occurrence: None)
  Receive Date: 20060609
  Receipt Date: 20060323
  Transmission Date: 20061013
  Serious: Yes (Hospitalization)
  Sender: FDA-Public Use
  Company Number: US-ROCHE-441808

PATIENT
  Age: 61 Year
  Sex: Female

DRUGS (5)
  1. PEGASYS [Suspect]
     Dosage: MISSED ONE DOSE.
     Route: 065
  2. PEGASYS [Suspect]
     Route: 065
  3. COPEGUS [Suspect]
     Dosage: MISSED ONE WEEK THERAPY.
     Route: 065
  4. COPEGUS [Suspect]
     Route: 065
  5. COPEGUS [Suspect]
     Route: 065

REACTIONS (15)
  - ANOREXIA [None]
  - ASTHENIA [None]
  - COUGH [None]
  - DEPRESSION [None]
  - DYSPNOEA [None]
  - FATIGUE [None]
  - INSOMNIA [None]
  - LYMPHADENOPATHY [None]
  - MUSCLE SPASMS [None]
  - PHARYNGEAL ERYTHEMA [None]
  - PYREXIA [None]
  - RASH [None]
  - RENAL PAIN [None]
  - WEIGHT DECREASED [None]
  - WHITE BLOOD CELL COUNT DECREASED [None]
